FAERS Safety Report 19718533 (Version 1)
Quarter: 2021Q3

REPORT INFORMATION
  Report Type: Spontaneous
  Country: US (occurrence: US)
  Receive Date: 20210818
  Receipt Date: 20210818
  Transmission Date: 20211014
  Serious: Yes (Hospitalization)
  Sender: FDA-Public Use
  Company Number: None

PATIENT
  Age: 23 Year
  Sex: Female
  Weight: 83.25 kg

DRUGS (9)
  1. TURMERIC [Concomitant]
     Active Substance: HERBALS\TURMERIC
  2. MELOXICAM. [Concomitant]
     Active Substance: MELOXICAM
  3. IRON [Concomitant]
     Active Substance: IRON
  4. TROKENDI XR [Concomitant]
     Active Substance: TOPIRAMATE
  5. AIMOVIG [Suspect]
     Active Substance: ERENUMAB-AOOE
     Indication: MIGRAINE
     Dosage: ?          QUANTITY:1 INJECTION(S);OTHER FREQUENCY:1X MONTHLY;?
     Route: 058
     Dates: start: 20210816, end: 20210816
  6. ZYRTEC [Concomitant]
     Active Substance: CETIRIZINE HYDROCHLORIDE
  7. VITAMIN D3 [Concomitant]
     Active Substance: CHOLECALCIFEROL
  8. UNITHROID [Concomitant]
     Active Substance: LEVOTHYROXINE SODIUM
  9. VITAMIN B12 [Concomitant]
     Active Substance: CYANOCOBALAMIN

REACTIONS (8)
  - Paraesthesia [None]
  - Muscle twitching [None]
  - Diplopia [None]
  - Dysarthria [None]
  - Chest pain [None]
  - Dyspnoea [None]
  - Chest discomfort [None]
  - Muscle spasms [None]

NARRATIVE: CASE EVENT DATE: 20210816
